FAERS Safety Report 16691539 (Version 3)
Quarter: 2019Q3

REPORT INFORMATION
  Report Type: Spontaneous
  Country: IN (occurrence: IN)
  Receive Date: 20190812
  Receipt Date: 20190916
  Transmission Date: 20191004
  Serious: Yes (Death, Hospitalization, Other)
  Sender: FDA-Public Use
  Company Number: IN-HBP-2019IN019347

PATIENT
  Age: 36 Year
  Sex: Male

DRUGS (4)
  1. XELIRI [Concomitant]
  2. XELODA [Concomitant]
     Active Substance: CAPECITABINE
     Dosage: 2500 MILLIGRAM, EVERYTWO WEEKS PER TEN DAYS
  3. AKYNZEO [Suspect]
     Active Substance: NETUPITANT\PALONOSETRON HYDROCHLORIDE
     Indication: PROPHYLAXIS OF NAUSEA AND VOMITING
     Dosage: UNK
     Route: 048
     Dates: start: 201903
  4. OXALIPLATIN. [Concomitant]
     Active Substance: OXALIPLATIN
     Dosage: 120 UNK.ON TWO WEEKLY BASIS

REACTIONS (2)
  - Seizure [Unknown]
  - Intestinal obstruction [Fatal]

NARRATIVE: CASE EVENT DATE: 2019
